FAERS Safety Report 9440820 (Version 1)
Quarter: 2013Q3

REPORT INFORMATION
  Report Type: Spontaneous
  Country: US (occurrence: US)
  Receive Date: 20130805
  Receipt Date: 20130805
  Transmission Date: 20140515
  Serious: No
  Sender: FDA-Public Use
  Company Number: US-009507513-1307USA015017

PATIENT
  Age: 23 Year
  Sex: Female
  Weight: 107.3 kg

DRUGS (1)
  1. NEXPLANON [Suspect]
     Indication: CONTRACEPTION
     Dosage: 1 DF, UNK
     Route: 059
     Dates: start: 20130103, end: 20130708

REACTIONS (2)
  - Medical device discomfort [Recovered/Resolved]
  - Device breakage [Recovered/Resolved]
